FAERS Safety Report 11402222 (Version 1)
Quarter: 2015Q3

REPORT INFORMATION
  Report Type: Spontaneous
  Country: US (occurrence: US)
  Receive Date: 20150821
  Receipt Date: 20150821
  Transmission Date: 20151125
  Serious: No
  Sender: FDA-Public Use
  Company Number: US-ROCHE-1340264

PATIENT
  Sex: Female

DRUGS (4)
  1. RIBAVIRIN. [Suspect]
     Active Substance: RIBAVIRIN
     Indication: CHRONIC HEPATITIS C
     Dosage: DIVIDED DOSES
     Route: 048
     Dates: start: 201311
  2. PEGASYS [Suspect]
     Active Substance: PEGINTERFERON ALFA-2A
     Indication: CHRONIC HEPATITIS C
     Dosage: PFS
     Route: 058
     Dates: start: 201311, end: 20140225
  3. INSULIN [Concomitant]
     Active Substance: INSULIN NOS
  4. BOCEPREVIR [Suspect]
     Active Substance: BOCEPREVIR
     Indication: CHRONIC HEPATITIS C
     Route: 065
     Dates: start: 20131213

REACTIONS (6)
  - Malaise [Unknown]
  - Rash papular [Unknown]
  - Drug ineffective [Unknown]
  - Injection site nodule [Unknown]
  - Weight decreased [Unknown]
  - Injection site haemorrhage [Unknown]
